FAERS Safety Report 9260965 (Version 1)
Quarter: 2013Q2

REPORT INFORMATION
  Report Type: Spontaneous
  Country: US (occurrence: US)
  Receive Date: 20130429
  Receipt Date: 20130429
  Transmission Date: 20140414
  Serious: No
  Sender: FDA-Public Use
  Company Number: US-AMGEN-USASP2012054258

PATIENT
  Age: 57 Year
  Sex: Male
  Weight: 132 kg

DRUGS (6)
  1. SENSIPAR [Suspect]
     Indication: HYPERPARATHYROIDISM SECONDARY
     Dosage: 90 MG, UNK
     Route: 048
     Dates: start: 20120103, end: 20120829
  2. FOSRENOL [Concomitant]
     Indication: BLOOD PHOSPHORUS INCREASED
     Dosage: 1000 MG, TID
     Route: 048
     Dates: start: 20120608
  3. OSCAL                              /00514701/ [Concomitant]
     Indication: HYPOCALCAEMIA
     Dosage: 500 MG, UNK
     Dates: start: 20120608
  4. PREDNISONE [Concomitant]
     Indication: TRANSPLANT
     Dosage: 7.5 MG, UNK
     Route: 048
  5. PROGRAF [Concomitant]
     Indication: TRANSPLANT
     Route: 048
  6. GABAPENTIN [Concomitant]
     Dosage: 100 MG, UNK
     Route: 048

REACTIONS (1)
  - Skin papilloma [Recovered/Resolved]
